FAERS Safety Report 10886913 (Version 4)
Quarter: 2019Q2

REPORT INFORMATION
  Report Type: Spontaneous
  Country: US (occurrence: US)
  Receive Date: 20150304
  Receipt Date: 20190530
  Transmission Date: 20190711
  Serious: No
  Sender: FDA-Public Use
  Company Number: US-PFIZER INC-2015072718

PATIENT
  Age: 66 Year
  Sex: Female
  Weight: 53 kg

DRUGS (26)
  1. LYRICA [Suspect]
     Active Substance: PREGABALIN
     Dosage: 25 MG IN THE MORNING AND OPTIONAL 1 CAPSULE AT NOON/MIDDAY
     Route: 048
  2. ULTRAM [Concomitant]
     Active Substance: TRAMADOL HYDROCHLORIDE
     Dosage: TAKE 2 TABLETS (100MG TOTAL) BY MOUTH EVERY 6 (SIX) HOURS AS NEEDED
     Route: 048
     Dates: start: 20151121
  3. PENLAC [Concomitant]
     Active Substance: CICLOPIROX
     Dosage: 8 %, UNK (ONCE PER DAY X 3 MONTHS)
  4. REQUIP [Concomitant]
     Active Substance: ROPINIROLE HYDROCHLORIDE
     Dosage: 0.25 MG, 2X/DAY
     Route: 048
     Dates: start: 20141120
  5. VITAMIN D3 [Concomitant]
     Active Substance: CHOLECALCIFEROL
     Dosage: 2000 IU,  ONCE DAILY
     Route: 048
  6. PENLAC [Concomitant]
     Active Substance: CICLOPIROX
     Indication: PARONYCHIA
     Dosage: UNK UNK, 1X/DAY
     Dates: start: 20140324
  7. XANAX [Concomitant]
     Active Substance: ALPRAZOLAM
     Dosage: UNK
  8. ULTRAM [Concomitant]
     Active Substance: TRAMADOL HYDROCHLORIDE
     Indication: PAIN
     Dosage: TAKE 2 TABLETS (100 MG TOTAL) BY MOUTH EVERY 8 (EIGHT) HOURS AS NEEDED
     Dates: start: 20150112
  9. ZOSTAVAX [Concomitant]
     Active Substance: VARICELLA-ZOSTER VIRUS STRAIN OKA/MERCK LIVE ANTIGEN
     Dosage: UNK
     Dates: start: 20140910
  10. THERAGRAN [Concomitant]
     Active Substance: VITAMINS
     Dosage: 1 DF, 1X/DAY
     Route: 048
  11. ULTRAM [Concomitant]
     Active Substance: TRAMADOL HYDROCHLORIDE
     Dosage: TAKE 2 TABLETS (100MG TOTAL) BY MOUTH EVERY 6 (SIX) HOURS AS NEEDED
     Route: 048
  12. PROAIR HFA [Concomitant]
     Active Substance: ALBUTEROL SULFATE
     Dosage: 90 UG, UNK (90 MCG/ACTUATION INHALER)
  13. PERCOCET [Concomitant]
     Active Substance: ACETAMINOPHEN\OXYCODONE HYDROCHLORIDE
     Indication: AKATHISIA
     Dosage: UNK, AS NEEDED
  14. LYRICA [Suspect]
     Active Substance: PREGABALIN
     Indication: FIBROMYALGIA
     Dosage: 25 MG EVERY MORNING AND 50 MG EVERY EVENING
     Route: 048
     Dates: start: 20150213
  15. LYRICA [Suspect]
     Active Substance: PREGABALIN
     Dosage: AT 25 MG EVERY MORNING AND 50 MG EVERY EVENING
     Route: 048
     Dates: start: 20160111
  16. LYRICA [Suspect]
     Active Substance: PREGABALIN
     Dosage: 50 MG, EVERY EVENING
     Route: 048
  17. LIDODERM [Concomitant]
     Active Substance: LIDOCAINE
     Dosage: UNK
     Dates: start: 20140709
  18. LIDODERM [Concomitant]
     Active Substance: LIDOCAINE
     Dosage: 700 MG, UNK ((700 MG/PATCH))
  19. MIRAPEX [Concomitant]
     Active Substance: PRAMIPEXOLE DIHYDROCHLORIDE
     Dosage: 0.125 MG, EVERY EVENING (NIGHTLY)
     Route: 048
  20. PROAIR HFA [Concomitant]
     Active Substance: ALBUTEROL SULFATE
     Dosage: UNK
     Dates: start: 20140123
  21. MILK THISTLE [Concomitant]
     Active Substance: DIETARY SUPPLEMENT\HERBALS\MILK THISTLE
     Dosage: 150 MG, 1X/DAY
     Route: 048
  22. VALIUM [Concomitant]
     Active Substance: DIAZEPAM
     Indication: ANXIETY
     Dosage: 2 MG DAILY, AS NEEDED (PRN)
     Route: 048
  23. VALIUM [Concomitant]
     Active Substance: DIAZEPAM
     Dosage: 2 MG, UNK
  24. COLACE [Concomitant]
     Active Substance: DOCUSATE SODIUM
     Dosage: 50 MG, 2X/DAY
     Route: 048
  25. ULTRAM [Concomitant]
     Active Substance: TRAMADOL HYDROCHLORIDE
     Dosage: TAKE 2 TABLETS (100MG TOTAL) BY MOUTH EVERY 6 (SIX) HOURS AS NEEDED
     Route: 048
     Dates: start: 20151221
  26. CYTOMEL [Concomitant]
     Active Substance: LIOTHYRONINE SODIUM
     Dosage: 25 ?G, 1X/DAY
     Route: 048

REACTIONS (9)
  - Blepharitis [Unknown]
  - Fatigue [Unknown]
  - Burning sensation [Unknown]
  - Paraesthesia [Unknown]
  - Erythema of eyelid [Unknown]
  - Musculoskeletal stiffness [Unknown]
  - Groin pain [Unknown]
  - Neck pain [Unknown]
  - Back pain [Unknown]
